APPROVED DRUG PRODUCT: CYPROHEPTADINE HYDROCHLORIDE
Active Ingredient: CYPROHEPTADINE HYDROCHLORIDE
Strength: 2MG/5ML
Dosage Form/Route: SYRUP;ORAL
Application: A089199 | Product #001
Applicant: HALSEY DRUG CO INC
Approved: Jul 3, 1986 | RLD: No | RS: No | Type: DISCN